FAERS Safety Report 6081485-4 (Version None)
Quarter: 2009Q1

REPORT INFORMATION
  Report Type: 
  Country: None (occurrence: None)
  Receive Date: 20090213
  Receipt Date: 20090130
  Transmission Date: 20090719
  Serious: Yes (Hospitalization, Other)
  Sender: FDA-Public Use
  Company Number: 081118-0000929

PATIENT
  Age: 6 Month
  Sex: Male
  Weight: 6 kg

DRUGS (14)
  1. COSMEGEN [Suspect]
     Indication: FIBROSARCOMA
     Dosage: 0.045MG; IV; 0.07 MG; IV; 0.045 MG; IV
     Route: 042
     Dates: start: 20071005, end: 20071009
  2. COSMEGEN [Suspect]
     Indication: FIBROSARCOMA
     Dosage: 0.045MG; IV; 0.07 MG; IV; 0.045 MG; IV
     Route: 042
     Dates: start: 20071102, end: 20071106
  3. COSMEGEN [Suspect]
     Indication: FIBROSARCOMA
     Dosage: 0.045MG; IV; 0.07 MG; IV; 0.045 MG; IV
     Route: 042
     Dates: start: 20071130, end: 20071204
  4. ONCOVIN [Suspect]
     Indication: FIBROSARCOMA
     Dosage: 0.24 MG;IV; 0.37 MG;IV
     Route: 042
     Dates: start: 20071005, end: 20071005
  5. ONCOVIN [Suspect]
     Indication: FIBROSARCOMA
     Dosage: 0.24 MG;IV; 0.37 MG;IV
     Route: 042
     Dates: start: 20071102, end: 20071102
  6. DOXORUBICIN HCL [Suspect]
     Indication: FIBROSARCOMA
     Dosage: IV
     Route: 042
  7. CYCLOPHOSPHAMIDE [Suspect]
     Indication: FIBROSARCOMA
  8. ETOPOSIDE [Suspect]
     Indication: FIBROSARCOMA
  9. IFOSFAMIDE [Suspect]
     Indication: FIBROSARCOMA
     Dosage: IV
     Route: 042
  10. CARBOPLATIN [Suspect]
     Indication: FIBROSARCOMA
     Dosage: IVDRP
     Route: 041
  11. KYTRIL [Concomitant]
  12. TARGOCID [Concomitant]
  13. FLUMARIN [Concomitant]
  14. HEPARIN [Concomitant]

REACTIONS (7)
  - BONE MARROW FAILURE [None]
  - MICROANGIOPATHY [None]
  - POOR SUCKING REFLEX [None]
  - PYREXIA [None]
  - RENAL IMPAIRMENT [None]
  - URINE OUTPUT DECREASED [None]
  - VOMITING [None]
